FAERS Safety Report 20175819 (Version 12)
Quarter: 2023Q4

REPORT INFORMATION
  Report Type: Report from Study
  Country: CN (occurrence: None)
  Receive Date: 20211213
  Receipt Date: 20231030
  Transmission Date: 20240109
  Serious: Yes (Hospitalization)
  Sender: FDA-Public Use
  Company Number: CN-ROCHE-2973761

PATIENT
  Age: 36 Year
  Sex: Female
  Weight: 77 kg

DRUGS (34)
  1. ATEZOLIZUMAB [Suspect]
     Active Substance: ATEZOLIZUMAB
     Indication: HER2 positive breast cancer
     Dosage: DATE OF MOST RECENT DOSE OF BLINDED ATEZOLIZUMAB ADMINISTERED PRIOR TO THE ONSET OF SERIOUS ADVERSE
     Route: 041
     Dates: start: 20211126
  2. ADO-TRASTUZUMAB EMTANSINE [Suspect]
     Active Substance: ADO-TRASTUZUMAB EMTANSINE
     Indication: HER2 positive breast cancer
     Dosage: DATE OF MOST RECENT DOSE 277.2 MG/KG OF TRASTUZUMAB EMTANSINE ADMINISTERED PRIOR TO ONSET OF SAE 26/
     Route: 042
     Dates: start: 20211126
  3. LETROZOLE [Concomitant]
     Active Substance: LETROZOLE
     Route: 048
     Dates: start: 20211025, end: 20220727
  4. GOSERELIN ACETATE [Concomitant]
     Active Substance: GOSERELIN ACETATE
     Route: 058
     Dates: start: 20210914
  5. GOSERELIN ACETATE [Concomitant]
     Active Substance: GOSERELIN ACETATE
     Route: 058
     Dates: start: 20211209, end: 20211209
  6. GOSERELIN ACETATE [Concomitant]
     Active Substance: GOSERELIN ACETATE
     Dosage: SUSTAINED-RELEASE DEPOT
     Route: 058
     Dates: start: 20220505
  7. BICYCLOL [Concomitant]
     Active Substance: BICYCLOL
     Indication: Hepatic function abnormal
     Route: 048
     Dates: start: 20211101, end: 20211125
  8. BICYCLOL [Concomitant]
     Active Substance: BICYCLOL
     Route: 048
     Dates: start: 20211210, end: 20220104
  9. HERBALS\DIAMMONIUM GLYCYRRHIZINATE [Concomitant]
     Active Substance: HERBALS\DIAMMONIUM GLYCYRRHIZINATE
     Indication: Hepatic function abnormal
     Dates: start: 20211101, end: 20211125
  10. HERBALS\DIAMMONIUM GLYCYRRHIZINATE [Concomitant]
     Active Substance: HERBALS\DIAMMONIUM GLYCYRRHIZINATE
     Dates: start: 20211210, end: 20220104
  11. GRANULOCYTE COLONY-STIMULATING FACTOR NOS [Concomitant]
     Active Substance: GRANULOCYTE COLONY-STIMULATING FACTOR NOS
     Indication: Neutrophil count decreased
     Dates: start: 20211202, end: 20211202
  12. AMINOMETHYLBENZOIC ACID [Concomitant]
     Active Substance: AMINOMETHYLBENZOIC ACID
     Indication: Epistaxis
     Dates: start: 20211202, end: 20211202
  13. AMINOMETHYLBENZOIC ACID [Concomitant]
     Active Substance: AMINOMETHYLBENZOIC ACID
     Dates: start: 20211205, end: 20211205
  14. ETHAMSYLATE [Concomitant]
     Active Substance: ETHAMSYLATE
     Indication: Epistaxis
     Dates: start: 20211202, end: 20211202
  15. ETHAMSYLATE [Concomitant]
     Active Substance: ETHAMSYLATE
     Dates: start: 20211205, end: 20211205
  16. DEXAMETHASONE SODIUM PHOSPHATE [Concomitant]
     Active Substance: DEXAMETHASONE SODIUM PHOSPHATE
     Indication: Radiation skin injury
     Route: 042
     Dates: start: 20211130, end: 20211206
  17. DEXAMETHASONE SODIUM PHOSPHATE [Concomitant]
     Active Substance: DEXAMETHASONE SODIUM PHOSPHATE
     Route: 042
     Dates: start: 20211202, end: 20211202
  18. PROMETHAZINE HYDROCHLORIDE [Concomitant]
     Active Substance: PROMETHAZINE HYDROCHLORIDE
     Indication: Nausea
     Dates: start: 20211202, end: 20211202
  19. RABEPRAZOLE SODIUM [Concomitant]
     Active Substance: RABEPRAZOLE SODIUM
     Indication: Radiation skin injury
     Dates: start: 20211130, end: 20211130
  20. RABEPRAZOLE SODIUM [Concomitant]
     Active Substance: RABEPRAZOLE SODIUM
     Dates: start: 20211209, end: 20211211
  21. RABEPRAZOLE SODIUM [Concomitant]
     Active Substance: RABEPRAZOLE SODIUM
     Dates: start: 20211203, end: 20211205
  22. TROPISETRON CITRATE [Concomitant]
     Indication: Nausea
     Dates: start: 20211203, end: 20211205
  23. RECOMBINANT HUMAN EPIDERMAL GROWTH FACTOR DERIVATIVE FOR EXTERNAL USE, [Concomitant]
     Indication: Radiation skin injury
     Dates: start: 20211130, end: 20211130
  24. RECOMBINANT HUMAN EPIDERMAL GROWTH FACTOR DERIVATIVE FOR EXTERNAL USE, [Concomitant]
     Dates: start: 20211210, end: 20211210
  25. ANF-RHO [Concomitant]
     Active Substance: ANF-RHO
     Indication: Neutrophil count decreased
     Dates: start: 20211210, end: 20211210
  26. METHIONINE AND VITAMIN B1 [Concomitant]
     Indication: Hepatic function abnormal
     Dates: start: 20211209, end: 20211211
  27. TROPISETRON HYDROCHLORIDE [Concomitant]
     Active Substance: TROPISETRON HYDROCHLORIDE
     Indication: Nausea
     Dates: start: 20211130, end: 20211130
  28. ETHAMSYLATE [Concomitant]
     Active Substance: ETHAMSYLATE
     Indication: Epistaxis
     Dates: start: 20211205, end: 20211205
  29. BICYCLOL [Concomitant]
     Active Substance: BICYCLOL
     Dates: start: 20211101, end: 20211125
  30. HERBALS\DIAMMONIUM GLYCYRRHIZINATE [Concomitant]
     Active Substance: HERBALS\DIAMMONIUM GLYCYRRHIZINATE
     Dates: start: 20211101, end: 20211125
  31. HERBALS\DIAMMONIUM GLYCYRRHIZINATE [Concomitant]
     Active Substance: HERBALS\DIAMMONIUM GLYCYRRHIZINATE
     Dates: start: 20211210
  32. GRANULOCYTE COLONY-STIMULATING FACTOR NOS [Concomitant]
     Active Substance: GRANULOCYTE COLONY-STIMULATING FACTOR NOS
     Indication: Neutrophil count decreased
     Dates: start: 20211202, end: 20211202
  33. AMINOMETHYLBENZOIC ACID [Concomitant]
     Active Substance: AMINOMETHYLBENZOIC ACID
     Dates: start: 20211202, end: 20211202
  34. RECOMBINANT HUMAN ACIDIC FIBROBLAST GROWTH FACTOR [Concomitant]
     Indication: Radiation skin injury
     Dates: start: 20211126, end: 20220207

REACTIONS (1)
  - Platelet count decreased [Recovered/Resolved]

NARRATIVE: CASE EVENT DATE: 20211202
